FAERS Safety Report 11016711 (Version 2)
Quarter: 2015Q2

REPORT INFORMATION
  Report Type: Spontaneous
  Country: US (occurrence: US)
  Receive Date: 20150412
  Receipt Date: 20150525
  Transmission Date: 20150821
  Serious: No
  Sender: FDA-Public Use
  Company Number: US-JNJFOC-20130618009

PATIENT
  Sex: Female

DRUGS (1)
  1. ORTHO EVRA [Suspect]
     Active Substance: ETHINYL ESTRADIOL\NORELGESTROMIN
     Indication: CONTRACEPTION
     Dosage: 6 CYCLES, NORELGESTROMIN 6.0MG AND 0.75 MG ETHINYL ESTRADIOL
     Route: 062

REACTIONS (2)
  - Ubiquinone decreased [Unknown]
  - Blood test abnormal [Unknown]
